FAERS Safety Report 8146824-9 (Version None)
Quarter: 2012Q1

REPORT INFORMATION
  Report Type: 
  Country: None (occurrence: None)
  Receive Date: 20120217
  Receipt Date: 20120210
  Transmission Date: 20120608
  Serious: Yes (Other)
  Sender: FDA-Public Use
  Company Number: US-ABBOTT-12P-163-0903313-00

PATIENT
  Sex: Male

DRUGS (2)
  1. UNKNOWN NARCOTICS [Concomitant]
     Indication: PRODUCT USED FOR UNKNOWN INDICATION
  2. HYDROCODONE BITARTRATE [Suspect]
     Indication: PRODUCT USED FOR UNKNOWN INDICATION

REACTIONS (6)
  - DRUG ABUSER [None]
  - CRIME [None]
  - IMPRISONMENT [None]
  - THEFT [None]
  - HOMICIDE [None]
  - PRESCRIPTION FORM TAMPERING [None]
